FAERS Safety Report 8305200-6 (Version None)
Quarter: 2012Q2

REPORT INFORMATION
  Report Type: 
  Country: None (occurrence: None)
  Receive Date: 20120423
  Receipt Date: 20120413
  Transmission Date: 20120825
  Serious: Yes (Hospitalization, Other)
  Sender: FDA-Public Use
  Company Number: US-ASTRAZENECA-2010SE09746

PATIENT
  Age: 74 Year
  Sex: Male
  Weight: 72.6 kg

DRUGS (5)
  1. NEXIUM [Suspect]
     Route: 048
  2. CRESTOR [Concomitant]
     Indication: BLOOD CHOLESTEROL ABNORMAL
     Route: 048
  3. NEXIUM [Suspect]
     Indication: GASTROOESOPHAGEAL REFLUX DISEASE
     Route: 048
  4. NEXIUM [Suspect]
     Route: 048
  5. ZETIA [Concomitant]
     Indication: BLOOD CHOLESTEROL ABNORMAL
     Route: 048

REACTIONS (6)
  - ABDOMINAL DISCOMFORT [None]
  - OSTEOARTHRITIS [None]
  - FLATULENCE [None]
  - ABDOMINAL PAIN UPPER [None]
  - DIARRHOEA [None]
  - SPINAL OSTEOARTHRITIS [None]
